FAERS Safety Report 22171086 (Version 1)
Quarter: 2023Q2

REPORT INFORMATION
  Report Type: Spontaneous
  Country: GB (occurrence: GB)
  Receive Date: 20230404
  Receipt Date: 20230404
  Transmission Date: 20230722
  Serious: Yes (Life-Threatening, Hospitalization)
  Sender: FDA-Public Use
  Company Number: None

PATIENT

DRUGS (6)
  1. CLOPIDOGREL [Suspect]
     Active Substance: CLOPIDOGREL BISULFATE
     Indication: Product used for unknown indication
  2. CARBIMAZOLE [Concomitant]
     Active Substance: CARBIMAZOLE
  3. DILTIAZEM [Concomitant]
     Active Substance: DILTIAZEM
  4. IRBESARTAN [Concomitant]
     Active Substance: IRBESARTAN
  5. LANSOPRAZOLE [Concomitant]
     Active Substance: LANSOPRAZOLE
  6. NICORANDIL [Concomitant]
     Active Substance: NICORANDIL

REACTIONS (1)
  - Cerebrovascular accident [Recovered/Resolved]
